FAERS Safety Report 6202994-0 (Version None)
Quarter: 2009Q2

REPORT INFORMATION
  Report Type: 
  Country: None (occurrence: None)
  Receive Date: 20090521
  Receipt Date: 20090512
  Transmission Date: 20091009
  Serious: Yes (Life-Threatening, Hospitalization, Other)
  Sender: FDA-Public Use
  Company Number: 273812

PATIENT
  Age: 15 Year
  Sex: Female

DRUGS (5)
  1. METHOTREXATE [Suspect]
     Indication: BONE SARCOMA
     Dosage: 12 G/M2, 4-HOUR INFUSION, INTRAVENOUS
     Route: 042
  2. (FIOSFAMIDE) [Concomitant]
  3. DOXORUBICIN HCL [Concomitant]
  4. CISPLATIN [Concomitant]
  5. GRANISETRON HCL [Concomitant]

REACTIONS (6)
  - ALANINE AMINOTRANSFERASE INCREASED [None]
  - ANAPHYLACTIC REACTION [None]
  - BLOOD CREATININE INCREASED [None]
  - CHEMOTHERAPEUTIC DRUG LEVEL INCREASED [None]
  - DRUG CLEARANCE DECREASED [None]
  - TREMOR [None]
